FAERS Safety Report 14469502 (Version 1)
Quarter: 2018Q1

REPORT INFORMATION
  Report Type: Other
  Country: US (occurrence: US)
  Receive Date: 20180131
  Receipt Date: 20180131
  Transmission Date: 20180509
  Serious: No
  Sender: FDA-Public Use
  Company Number: US-ACORDA-ACO_140479_2017

PATIENT
  Sex: Female

DRUGS (1)
  1. AMPYRA [Suspect]
     Active Substance: DALFAMPRIDINE
     Indication: PRODUCT USED FOR UNKNOWN INDICATION
     Dosage: 6AM AND 4PM
     Route: 048
     Dates: start: 201406

REACTIONS (4)
  - Inappropriate schedule of drug administration [Unknown]
  - Hyperthyroidism [Unknown]
  - Gait inability [Unknown]
  - Drug effect incomplete [Unknown]
